FAERS Safety Report 4498180-5 (Version None)
Quarter: 2004Q3

REPORT INFORMATION
  Report Type: 
  Country: None (occurrence: None)
  Receive Date: 20040927
  Receipt Date: 20040604
  Transmission Date: 20050211
  Serious: No
  Sender: FDA-Public Use
  Company Number: USA040669361

PATIENT
  Age: 50 Year
  Sex: Male

DRUGS (4)
  1. STRATTERA [Suspect]
     Dosage: 80 MG DAY
     Dates: start: 20040527
  2. TOPRAL (SULTOPRIDE) [Concomitant]
  3. ALTACE [Concomitant]
  4. HYDROCHLOROTHIAZIDE [Concomitant]

REACTIONS (2)
  - DRUG INEFFECTIVE [None]
  - FEELING ABNORMAL [None]
